FAERS Safety Report 25198070 (Version 1)
Quarter: 2025Q2

REPORT INFORMATION
  Report Type: Spontaneous
  Country: US (occurrence: US)
  Receive Date: 20250415
  Receipt Date: 20250415
  Transmission Date: 20250716
  Serious: No
  Sender: CHIESI
  Company Number: US-CHIESI-2025CHF01667

PATIENT
  Sex: Female
  Weight: 33.602 kg

DRUGS (1)
  1. FILSUVEZ [Suspect]
     Active Substance: BIRCH TRITERPENES
     Indication: Epidermolysis bullosa
     Route: 061
     Dates: start: 20240830

REACTIONS (2)
  - Streptococcal infection [Recovering/Resolving]
  - Wound complication [Recovering/Resolving]
